FAERS Safety Report 4295921-7 (Version None)
Quarter: 2004Q1

REPORT INFORMATION
  Report Type: 
  Country: None (occurrence: None)
  Receive Date: 20040212
  Receipt Date: 20040202
  Transmission Date: 20041129
  Serious: Yes (Hospitalization)
  Sender: FDA-Public Use
  Company Number: BE-JNJFOC-20040200666

PATIENT
  Sex: Female
  Weight: 6.2 kg

DRUGS (2)
  1. PROPULSID [Suspect]
     Indication: GASTROOESOPHAGEAL REFLUX DISEASE
     Dosage: 1.6 MG, 2 IN 1 DAY, UNKNOWN
     Dates: start: 20030825
  2. SERETIDE (INHALATION) SERETIDE [Concomitant]

REACTIONS (2)
  - BRONCHIOLITIS [None]
  - RESPIRATORY DISTRESS [None]
